FAERS Safety Report 7354962-3 (Version None)
Quarter: 2011Q1

REPORT INFORMATION
  Report Type: 
  Country: None (occurrence: None)
  Receive Date: 20110311
  Receipt Date: 20110311
  Transmission Date: 20110831
  Serious: Yes (Other)
  Sender: FDA-Public Use
  Company Number: None

PATIENT
  Sex: Female
  Weight: 62.5964 kg

DRUGS (1)
  1. AMANTADINE HCL [Suspect]
     Indication: PARKINSON'S DISEASE
     Dosage: 100 MGM CAPS 2 X DAILY ORAL
     Route: 048

REACTIONS (3)
  - INSOMNIA [None]
  - DRY MOUTH [None]
  - VENOUS VALVE RUPTURED [None]
